FAERS Safety Report 21070594 (Version 1)
Quarter: 2022Q3

REPORT INFORMATION
  Report Type: Spontaneous
  Country: GB (occurrence: GB)
  Receive Date: 20220712
  Receipt Date: 20220712
  Transmission Date: 20221027
  Serious: Yes (Hospitalization)
  Sender: FDA-Public Use
  Company Number: None

PATIENT
  Age: 46 Year

DRUGS (2)
  1. OXALIPLATIN [Suspect]
     Active Substance: OXALIPLATIN
     Dosage: 225 MG
     Route: 041
  2. CAPECITABINE [Suspect]
     Active Substance: CAPECITABINE
     Dosage: 1650 MG, 2X/DAY
     Route: 048

REACTIONS (2)
  - Infection [Recovered/Resolved]
  - Neutropenic sepsis [Recovered/Resolved]
